FAERS Safety Report 24691395 (Version 2)
Quarter: 2025Q1

REPORT INFORMATION
  Report Type: Report from Study
  Country: US (occurrence: US)
  Receive Date: 20241203
  Receipt Date: 20250131
  Transmission Date: 20250409
  Serious: Yes (Hospitalization, Other)
  Sender: GILEAD
  Company Number: US-GILEAD-2024-0695755

PATIENT
  Age: 66 Year
  Sex: Male

DRUGS (26)
  1. AZTREONAM LYSINE [Suspect]
     Active Substance: AZTREONAM LYSINE
     Indication: Cystic fibrosis
     Dosage: 75 MG, TID [FOR 28 DAYS FOLLOWED BY 28 DAYS OFF ]
     Route: 055
  2. AZTREONAM LYSINE [Suspect]
     Active Substance: AZTREONAM LYSINE
     Indication: Cystic fibrosis lung
  3. AZTREONAM LYSINE [Suspect]
     Active Substance: AZTREONAM LYSINE
     Indication: Pseudomonas infection
  4. IBUPROFEN [Concomitant]
     Active Substance: IBUPROFEN
  5. HUMALOG [Concomitant]
     Active Substance: INSULIN LISPRO
  6. DULERA [Concomitant]
     Active Substance: FORMOTEROL FUMARATE DIHYDRATE\MOMETASONE FUROATE
  7. LANTUS [Concomitant]
     Active Substance: INSULIN GLARGINE
  8. PYRIDOXINE [Concomitant]
     Active Substance: PYRIDOXINE
  9. CALCIUM CARBONATE [Concomitant]
     Active Substance: CALCIUM CARBONATE
  10. RETINOL [Concomitant]
     Active Substance: RETINOL
  11. SENNA LEAF [Concomitant]
     Active Substance: SENNA LEAF
  12. VITAMIN B12 [Concomitant]
     Active Substance: CYANOCOBALAMIN
  13. ALENDRONATE SODIUM [Concomitant]
     Active Substance: ALENDRONATE SODIUM
  14. MAGNESIUM [Concomitant]
     Active Substance: MAGNESIUM
  15. CITRACAL + D3 [Concomitant]
  16. AZITHROMYCIN [Concomitant]
     Active Substance: AZITHROMYCIN
  17. SERTRALINE HYDROCHLORIDE [Concomitant]
     Active Substance: SERTRALINE HYDROCHLORIDE
  18. PULMOZYME [Concomitant]
     Active Substance: DORNASE ALFA
  19. URSODIOL [Concomitant]
     Active Substance: URSODIOL
  20. LISINOPRIL [Concomitant]
     Active Substance: LISINOPRIL
  21. ZENPEP [Concomitant]
     Active Substance: PANCRELIPASE AMYLASE\PANCRELIPASE LIPASE\PANCRELIPASE PROTEASE
  22. VITAMIN C [Concomitant]
     Active Substance: ASCORBIC ACID
  23. TRIKAFTA [Concomitant]
     Active Substance: ELEXACAFTOR\IVACAFTOR\TEZACAFTOR
  24. SERTRALINE HYDROCHLORIDE [Concomitant]
     Active Substance: SERTRALINE HYDROCHLORIDE
  25. VITAMINS [Concomitant]
     Active Substance: VITAMINS
  26. CALCIUM [Concomitant]
     Active Substance: CALCIUM

REACTIONS (6)
  - Cystic fibrosis [Unknown]
  - Wheezing [Unknown]
  - Pneumonia [Unknown]
  - Cough [Unknown]
  - Dyspnoea [Unknown]
  - Influenza [Unknown]

NARRATIVE: CASE EVENT DATE: 20241201
